FAERS Safety Report 6416128-0 (Version None)
Quarter: 2009Q4

REPORT INFORMATION
  Report Type: 
  Country: None (occurrence: None)
  Receive Date: 20091027
  Receipt Date: 20091020
  Transmission Date: 20100525
  Serious: Yes (Death)
  Sender: FDA-Public Use
  Company Number: CN-AVENTIS-200921754GDDC

PATIENT
  Age: 2 Year
  Sex: Male

DRUGS (2)
  1. CLAFORAN [Suspect]
     Route: 042
     Dates: start: 20090303, end: 20090303
  2. CLAFORAN [Suspect]

REACTIONS (3)
  - ASPHYXIA [None]
  - HYPERSENSITIVITY [None]
  - LARYNGEAL OEDEMA [None]
